FAERS Safety Report 8791008 (Version 1)
Quarter: 2012Q4

REPORT INFORMATION
  Report Type: 
  Country: US (occurrence: None)
  Receive Date: 20120907
  Receipt Date: 20120907
  Transmission Date: 20130627
  Serious: Yes (Other)
  Sender: FDA-Public Use
  Company Number: 2012MA010412

PATIENT
  Sex: Female

DRUGS (15)
  1. METFORMIN [Suspect]
  2. GABAPENTIN [Suspect]
  3. TRAMADOL HYDROCHLORIDE [Suspect]
  4. LASIX [Concomitant]
  5. HUMULIN NPH PEN [Concomitant]
  6. TOPROL XL [Concomitant]
  7. CARDURA [Concomitant]
  8. NORVASC [Concomitant]
  9. ASPIRIN [Concomitant]
  10. AVAPRO [Concomitant]
  11. CLARITIN [Concomitant]
  12. ANTIVERT [Concomitant]
  13. FLONASE [Concomitant]
  14. CRESTOR [Concomitant]
  15. PRENATAL MULTIVITAMINS [Concomitant]

REACTIONS (2)
  - Renal impairment [None]
  - Hallucination [None]
